FAERS Safety Report 10387545 (Version 2)
Quarter: 2014Q3

REPORT INFORMATION
  Report Type: Spontaneous
  Country: US (occurrence: US)
  Receive Date: 20140815
  Receipt Date: 20140815
  Transmission Date: 20150326
  Serious: Yes (Life-Threatening, Hospitalization, Other)
  Sender: FDA-Public Use
  Company Number: US-009507513-2010SP028235

PATIENT
  Sex: Female
  Weight: 55.79 kg

DRUGS (1)
  1. NUVARING [Suspect]
     Active Substance: ETHINYL ESTRADIOL\ETONOGESTREL
     Indication: CONTRACEPTION
     Dosage: INSERT 1 RING FOR 3 WEEKS, THEN LEAVE OUT FOR 1 WEEK
     Route: 067
     Dates: start: 200507, end: 20070110

REACTIONS (11)
  - Anticoagulation drug level below therapeutic [Unknown]
  - Headache [Unknown]
  - Bladder spasm [Recovered/Resolved]
  - Menstrual discomfort [Unknown]
  - Thrombolysis [Recovering/Resolving]
  - Deep vein thrombosis [Recovering/Resolving]
  - Anxiety [Unknown]
  - Heat stroke [Unknown]
  - Pelvic fluid collection [Unknown]
  - Ovarian cyst ruptured [Unknown]
  - Pulmonary embolism [Unknown]

NARRATIVE: CASE EVENT DATE: 200701
